FAERS Safety Report 12658541 (Version 1)
Quarter: 2016Q3

REPORT INFORMATION
  Report Type: Spontaneous
  Country: US (occurrence: None)
  Receive Date: 20160816
  Receipt Date: 20160816
  Transmission Date: 20161109
  Serious: No
  Sender: FDA-Public Use
  Company Number: None

PATIENT
  Age: 50 Year
  Sex: Female
  Weight: 77.11 kg

DRUGS (3)
  1. PREVIDENT 5000 [Concomitant]
  2. DOXYCYCLINE HYCLATE 100MG CAP GENERIC/VA FORMULARY [Suspect]
     Active Substance: DOXYCYCLINE HYCLATE
     Indication: TOOTH INFECTION
     Route: 048
     Dates: start: 20160801, end: 20160804
  3. RANITIDINE. [Concomitant]
     Active Substance: RANITIDINE

REACTIONS (2)
  - Headache [None]
  - Intracranial pressure increased [None]

NARRATIVE: CASE EVENT DATE: 20160801
